FAERS Safety Report 21696134 (Version 1)
Quarter: 2022Q4

REPORT INFORMATION
  Report Type: Spontaneous
  Country: US (occurrence: None)
  Receive Date: 20221207
  Receipt Date: 20221207
  Transmission Date: 20230113
  Serious: Yes (Death)
  Sender: FDA-Public Use
  Company Number: None

PATIENT
  Age: 86 Year
  Sex: Female
  Weight: 50 kg

DRUGS (1)
  1. PEMBROLIZUMAB [Suspect]
     Active Substance: PEMBROLIZUMAB
     Dates: end: 20211129

REACTIONS (8)
  - Fall [None]
  - Seizure [None]
  - Urinary incontinence [None]
  - Asthenia [None]
  - Confusional state [None]
  - COVID-19 [None]
  - Intracranial aneurysm [None]
  - Metastatic neoplasm [None]

NARRATIVE: CASE EVENT DATE: 20211215
